FAERS Safety Report 15408903 (Version 3)
Quarter: 2018Q4

REPORT INFORMATION
  Report Type: Report from Study
  Country: US (occurrence: US)
  Receive Date: 20180920
  Receipt Date: 20181231
  Transmission Date: 20190204
  Serious: Yes (Hospitalization)
  Sender: FDA-Public Use
  Company Number: US-JNJFOC-20180914229

PATIENT
  Age: 20 Year
  Sex: Male
  Weight: 120.2 kg

DRUGS (1)
  1. REMICADE [Suspect]
     Active Substance: INFLIXIMAB
     Indication: INFLAMMATORY BOWEL DISEASE
     Route: 042
     Dates: start: 20050221

REACTIONS (1)
  - Perivascular dermatitis [Recovered/Resolved with Sequelae]

NARRATIVE: CASE EVENT DATE: 20180907
